FAERS Safety Report 7892603-7 (Version None)
Quarter: 2011Q4

REPORT INFORMATION
  Report Type: 
  Country: None (occurrence: None)
  Receive Date: 20111026
  Receipt Date: 20111012
  Transmission Date: 20120403
  Serious: Yes (Other)
  Sender: FDA-Public Use
  Company Number: 2011030082

PATIENT
  Sex: Female
  Weight: 70.3075 kg

DRUGS (16)
  1. MAGOX (MAGNESIUM OXIDE) [Concomitant]
  2. PREDNISONE TAB [Concomitant]
  3. WARFARIN SODIUM [Concomitant]
  4. ALVESCO [Concomitant]
  5. GLUCOSAMINE CHONDROITIN (CHONDROITIN SODIUM SULFATE W/GLUCOSAMINE HCL) [Concomitant]
  6. FISH OIL (FISH OIL) [Concomitant]
  7. HIZENTRA [Suspect]
     Dosage: (12 G 1X/WEEK, 4 GM 20 ML VIAL; 60 ML WEEKLY IN 3-4 SITES  SUBCUTANEOUS)
     Route: 058
     Dates: start: 20101213, end: 20110930
  8. XOLAIR [Concomitant]
  9. COREG [Concomitant]
  10. CYCLOBENZAPRINE [Concomitant]
  11. POTASSIUM CHLORIDE [Concomitant]
  12. EVISTA [Concomitant]
  13. XOPENEX HFA (LEVOSALBUTAMOL) [Concomitant]
  14. CALCIUM CARBONATE [Concomitant]
  15. GUAIFENESIN [Concomitant]
  16. SULINDAC [Concomitant]

REACTIONS (2)
  - RENAL FAILURE [None]
  - TYPE III IMMUNE COMPLEX MEDIATED REACTION [None]
